FAERS Safety Report 5752964-1 (Version None)
Quarter: 2008Q2

REPORT INFORMATION
  Report Type: 
  Country: None (occurrence: None)
  Receive Date: 20080529
  Receipt Date: 20080521
  Transmission Date: 20081010
  Serious: Yes (Congenital Anomaly)
  Sender: FDA-Public Use
  Company Number: BE-MERCK-0805BEL00013

PATIENT

DRUGS (1)
  1. SINGULAIR [Suspect]
     Indication: ASTHMA
     Route: 064

REACTIONS (4)
  - ATRIAL SEPTAL DEFECT [None]
  - CONGENITAL MUSCULOSKELETAL ANOMALY [None]
  - CONGENITAL SCOLIOSIS [None]
  - HAEMANGIOMA [None]
